FAERS Safety Report 16367180 (Version 1)
Quarter: 2019Q2

REPORT INFORMATION
  Report Type: Spontaneous
  Country: US (occurrence: US)
  Receive Date: 20190529
  Receipt Date: 20190529
  Transmission Date: 20190711
  Serious: Yes (Other)
  Sender: FDA-Public Use
  Company Number: US-MYLANLABS-2019M1050305

PATIENT
  Age: 4 Decade
  Sex: Female

DRUGS (1)
  1. TRIAMCINOLONE [Suspect]
     Active Substance: TRIAMCINOLONE
     Indication: CHORIORETINITIS
     Dosage: TOTAL 6 INJECTIONS WERE ADMINISTERED
     Route: 050

REACTIONS (7)
  - Anterior chamber disorder [Recovered/Resolved]
  - Intraocular pressure increased [Recovering/Resolving]
  - Cataract subcapsular [Recovered/Resolved]
  - Visual acuity reduced [Recovering/Resolving]
  - Hypopyon [Recovered/Resolved]
  - Non-infectious endophthalmitis [Recovered/Resolved]
  - Maternal exposure during pregnancy [Recovered/Resolved]
